FAERS Safety Report 4358593-9 (Version None)
Quarter: 2004Q2

REPORT INFORMATION
  Report Type: 
  Country: None (occurrence: None)
  Receive Date: 20040514
  Receipt Date: 20040406
  Transmission Date: 20050107
  Serious: Yes (Other)
  Sender: FDA-Public Use
  Company Number: RB-605-2004

PATIENT
  Age: 1 Day
  Sex: Male

DRUGS (1)
  1. BUPRENORPHINE HCL [Suspect]
     Indication: DRUG DEPENDENCE
     Dosage: 12 MG QD TPC
     Dates: start: 20021009, end: 20040220

REACTIONS (5)
  - CAESAREAN SECTION [None]
  - CONGENITAL INFECTION [None]
  - DRUG EXPOSURE DURING PREGNANCY [None]
  - HEPATITIS C POSITIVE [None]
  - PREGNANCY [None]
